FAERS Safety Report 18858799 (Version 1)
Quarter: 2021Q1

REPORT INFORMATION
  Report Type: Spontaneous
  Country: US (occurrence: US)
  Receive Date: 20210207
  Receipt Date: 20210207
  Transmission Date: 20210420
  Serious: No
  Sender: FDA-Public Use
  Company Number: None

PATIENT
  Age: 54 Year
  Sex: Male
  Weight: 62 kg

DRUGS (2)
  1. REMDESIVIR (REMDESIVIR 100MG/VIAL INJ) [Suspect]
     Active Substance: REMDESIVIR
     Indication: UPPER RESPIRATORY TRACT INFECTION
     Route: 042
     Dates: start: 20201218, end: 20201222
  2. DEXAMETHASONE (DEXAMETHASONE 6MG TAB) [Suspect]
     Active Substance: DEXAMETHASONE
     Indication: UPPER RESPIRATORY TRACT INFECTION
     Route: 048
     Dates: start: 20201217, end: 20201222

REACTIONS (2)
  - Alanine aminotransferase increased [None]
  - Hepatic enzyme increased [None]

NARRATIVE: CASE EVENT DATE: 20201222
